FAERS Safety Report 10203333 (Version 2)
Quarter: 2014Q2

REPORT INFORMATION
  Report Type: Spontaneous
  Country: GB (occurrence: GB)
  Receive Date: 20140529
  Receipt Date: 20140611
  Transmission Date: 20141212
  Serious: Yes (Hospitalization)
  Sender: FDA-Public Use
  Company Number: PHFR2014GB003730

PATIENT
  Sex: Male

DRUGS (4)
  1. CLOZARIL [Suspect]
     Indication: SCHIZOPHRENIA
     Dosage: UNK
     Route: 048
     Dates: start: 20110711
  2. ARIPIPRAZOLE [Concomitant]
     Dosage: 10 MG, UNK
     Route: 048
  3. SODIUM VALPROATE [Concomitant]
     Dosage: 2 G, UNK
     Route: 048
  4. PROPANOLOL [Concomitant]
     Dosage: 40 MG, UNK
     Route: 048

REACTIONS (1)
  - Suicidal ideation [Unknown]
